FAERS Safety Report 8971333 (Version 4)
Quarter: 2013Q2

REPORT INFORMATION
  Report Type: Spontaneous
  Country: US (occurrence: US)
  Receive Date: 20121218
  Receipt Date: 20130429
  Transmission Date: 20140414
  Serious: Yes (Other)
  Sender: FDA-Public Use
  Company Number: US-AMGEN-USASP2012068257

PATIENT
  Age: 45 Year
  Sex: Female
  Weight: 86.36 kg

DRUGS (3)
  1. NPLATE [Suspect]
     Indication: IDIOPATHIC THROMBOCYTOPENIC PURPURA
     Dosage: 172 UNK, QWK
     Dates: start: 20110916
  2. NPLATE [Suspect]
  3. NPLATE [Suspect]

REACTIONS (3)
  - Therapeutic response decreased [Unknown]
  - Benign hydatidiform mole [Unknown]
  - Platelet count decreased [Unknown]
